FAERS Safety Report 25452635 (Version 3)
Quarter: 2025Q3

REPORT INFORMATION
  Report Type: Spontaneous
  Country: EU (occurrence: EU)
  Receive Date: 20250618
  Receipt Date: 20250807
  Transmission Date: 20251021
  Serious: Yes (Other)
  Sender: SANDOZ
  Company Number: EU-ABBVIE-6321662

PATIENT
  Age: 63 Year
  Sex: Female
  Weight: 64 kg

DRUGS (2)
  1. ADALIMUMAB [Suspect]
     Active Substance: ADALIMUMAB
     Indication: Adenosine deaminase 2 deficiency
     Dosage: 40 MILLIGRAM, Q2WK
     Route: 058
     Dates: start: 202110, end: 202202
  2. DAPSONE [Suspect]
     Active Substance: DAPSONE
     Indication: Adenosine deaminase 2 deficiency
     Route: 061

REACTIONS (8)
  - Injection site necrosis [Unknown]
  - Necrosis [Recovered/Resolved]
  - Haemorrhage [Unknown]
  - Injection site erythema [Unknown]
  - Injection site haemorrhage [Unknown]
  - Drug ineffective [Unknown]
  - Drug effective for unapproved indication [Unknown]
  - Off label use [Unknown]

NARRATIVE: CASE EVENT DATE: 20220101
